FAERS Safety Report 7368853-5 (Version None)
Quarter: 2011Q1

REPORT INFORMATION
  Report Type: 
  Country: None (occurrence: None)
  Receive Date: 20110323
  Receipt Date: 20100928
  Transmission Date: 20110831
  Serious: Yes (Hospitalization, Other)
  Sender: FDA-Public Use
  Company Number: US-BAYER-201010709NA

PATIENT
  Sex: Female
  Weight: 58.957 kg

DRUGS (6)
  1. YASMIN [Suspect]
     Dosage: UNK
     Dates: start: 20030801, end: 20040131
  2. ZOLOFT [Concomitant]
     Indication: DEPRESSION
     Dosage: UNK
     Dates: start: 20031101, end: 20060301
  3. YAZ [Suspect]
     Indication: PRODUCT USED FOR UNKNOWN INDICATION
     Dosage: 1 DF (DAILY DOSE), QD, ORAL
     Route: 048
     Dates: start: 20030601, end: 20031201
  4. YASMIN [Suspect]
     Dosage: UNK
     Dates: start: 20030601, end: 20040101
  5. NSAID'S [Concomitant]
  6. YASMIN [Suspect]
     Indication: CONTRACEPTION
     Dosage: 1 DF (DAILY DOSE), QD, ORAL
     Route: 048
     Dates: start: 20030601, end: 20031201

REACTIONS (6)
  - SWELLING [None]
  - HYPOAESTHESIA [None]
  - DYSPNOEA [None]
  - PULMONARY EMBOLISM [None]
  - CHEST PAIN [None]
  - PAIN [None]
